FAERS Safety Report 16088800 (Version 1)
Quarter: 2019Q1

REPORT INFORMATION
  Report Type: Report from Study
  Country: GE (occurrence: GE)
  Receive Date: 20190319
  Receipt Date: 20190319
  Transmission Date: 20190418
  Serious: Yes (Death, Hospitalization)
  Sender: FDA-Public Use
  Company Number: GE-MELINTA THERAPEUTICS, INC-MTP201806-000040

PATIENT
  Age: 72 Year
  Sex: Male
  Weight: 78.2 kg

DRUGS (7)
  1. DICLOFENAC [Concomitant]
     Active Substance: DICLOFENAC
     Indication: PNEUMONIA
     Route: 030
     Dates: start: 20180525, end: 20180526
  2. AMBROXOL [Concomitant]
     Active Substance: AMBROXOL
     Indication: PNEUMONIA
     Route: 048
     Dates: start: 20180525, end: 20180530
  3. BUDESONIDE. [Concomitant]
     Active Substance: BUDESONIDE
     Indication: PNEUMONIA
     Route: 055
     Dates: start: 20180524, end: 20180530
  4. DELAFLOXACIN [Suspect]
     Active Substance: DELAFLOXACIN MEGLUMINE
     Route: 042
     Dates: start: 20180524, end: 20180530
  5. DEXAMETHASONE. [Concomitant]
     Active Substance: DEXAMETHASONE
     Indication: PNEUMONIA
     Route: 042
     Dates: start: 20180527, end: 20180530
  6. DELAFLOXACIN [Suspect]
     Active Substance: DELAFLOXACIN MEGLUMINE
     Indication: PNEUMONIA
     Route: 048
     Dates: start: 20180530, end: 20180603
  7. PANTOPRAZOL [Concomitant]
     Active Substance: PANTOPRAZOLE SODIUM
     Indication: PROPHYLAXIS
     Route: 042
     Dates: start: 20180525, end: 20180530

REACTIONS (1)
  - Agranulocytosis [Fatal]

NARRATIVE: CASE EVENT DATE: 20180607
